FAERS Safety Report 16954777 (Version 4)
Quarter: 2019Q4

REPORT INFORMATION
  Report Type: Report from Study
  Country: US (occurrence: US)
  Receive Date: 20191024
  Receipt Date: 20191211
  Transmission Date: 20200122
  Serious: Yes (Other)
  Sender: FDA-Public Use
  Company Number: US-AMGEN-USASP2019172104

PATIENT
  Age: 88 Year
  Sex: Female

DRUGS (7)
  1. NPLATE [Suspect]
     Active Substance: ROMIPLOSTIM
     Dosage: 948 MICROGRAM (PREPARED AS 1.9 ML IN A 3 ML SYRINGE)
     Route: 065
     Dates: start: 20191203
  2. NPLATE [Suspect]
     Active Substance: ROMIPLOSTIM
     Dosage: 250 MICROGRAM
     Route: 065
  3. RITUXAN [Concomitant]
     Active Substance: RITUXIMAB
     Dosage: UNK
  4. NPLATE [Suspect]
     Active Substance: ROMIPLOSTIM
     Indication: IMMUNE THROMBOCYTOPENIC PURPURA
     Dosage: 250 MICROGRAM
     Route: 065
     Dates: start: 20191004
  5. NPLATE [Suspect]
     Active Substance: ROMIPLOSTIM
     Dosage: 9 MICROGRAM/KILOGRAM (853.2 MICROGRAM)
     Route: 065
     Dates: start: 201911
  6. MORPHINE [Concomitant]
     Active Substance: MORPHINE
     Dosage: UNK
     Route: 065
  7. NPLATE [Suspect]
     Active Substance: ROMIPLOSTIM
     Dosage: 10 MICROGRAM/KILOGRAM (750 MICROGRAM)
     Route: 065
     Dates: start: 201911

REACTIONS (7)
  - Platelet count abnormal [Not Recovered/Not Resolved]
  - Headache [Unknown]
  - Constipation [Recovering/Resolving]
  - Product preparation error [Unknown]
  - Weight decreased [Unknown]
  - Eye haemorrhage [Recovered/Resolved]
  - Hypophagia [Recovering/Resolving]

NARRATIVE: CASE EVENT DATE: 201910
